FAERS Safety Report 23044895 (Version 1)
Quarter: 2023Q4

REPORT INFORMATION
  Report Type: Spontaneous
  Country: US (occurrence: US)
  Receive Date: 20231009
  Receipt Date: 20231009
  Transmission Date: 20240110
  Serious: Yes (Other)
  Sender: FDA-Public Use
  Company Number: US-BAYER-2023A137378

PATIENT
  Sex: Female

DRUGS (1)
  1. AVELOX [Suspect]
     Active Substance: MOXIFLOXACIN HYDROCHLORIDE
     Dosage: UNK

REACTIONS (14)
  - Cataract [None]
  - Glaucoma [None]
  - Retinal detachment [None]
  - Urinary tract infection [None]
  - Scoliosis [None]
  - Muscle spasms [None]
  - Hypertonic bladder [None]
  - Urinary retention [None]
  - Contusion [None]
  - Osteoporosis [None]
  - Pericardial disease [None]
  - Palpitations [None]
  - Haemoglobin decreased [None]
  - Hypoglycaemia [None]
